FAERS Safety Report 6328103-5 (Version None)
Quarter: 2009Q3

REPORT INFORMATION
  Report Type: 
  Country: None (occurrence: None)
  Receive Date: 20090825
  Receipt Date: 20081021
  Transmission Date: 20100115
  Serious: No
  Sender: FDA-Public Use
  Company Number: US-ABBOTT-08P-163-0483505-00

PATIENT
  Age: 63 Year
  Sex: Male

DRUGS (5)
  1. SYNTHROID [Suspect]
     Indication: HYPERTHYROIDISM
     Dates: start: 20080101
  2. PEG-INTRON [Suspect]
     Indication: HEPATITIS C
     Route: 058
     Dates: start: 20071101, end: 20071207
  3. PEG-INTRON [Suspect]
     Route: 058
     Dates: start: 20080111
  4. RIBAVIRIN [Suspect]
     Indication: HEPATITIS C
     Route: 048
     Dates: start: 20071101, end: 20071207
  5. RIBAVIRIN [Suspect]
     Route: 048
     Dates: start: 20080111

REACTIONS (6)
  - ALOPECIA [None]
  - HYPOTHYROIDISM [None]
  - INFLUENZA [None]
  - POLLAKIURIA [None]
  - RASH [None]
  - TOOTH INFECTION [None]
